FAERS Safety Report 23467874 (Version 2)
Quarter: 2024Q1

REPORT INFORMATION
  Report Type: Spontaneous
  Country: US (occurrence: US)
  Receive Date: 20240201
  Receipt Date: 20240209
  Transmission Date: 20240410
  Serious: Yes (Other)
  Sender: FDA-Public Use
  Company Number: US-BIOMARINAP-US-2024-155533

PATIENT

DRUGS (5)
  1. VIMIZIM [Suspect]
     Active Substance: ELOSULFASE ALFA
     Indication: Mucopolysaccharidosis IV
     Dosage: 33 MILLIGRAM, QW
     Route: 042
     Dates: start: 20230501
  2. ENALAPRIL MALEATE [Concomitant]
     Active Substance: ENALAPRIL MALEATE
     Indication: Cardiac failure congestive
     Dosage: 2.5 MILLIGRAM
     Route: 048
     Dates: start: 20230629
  3. ZINC ACETATE [Concomitant]
     Active Substance: ZINC ACETATE
     Indication: Pruritus
     Dosage: UNK, PRN
     Route: 003
     Dates: start: 20230629
  4. DIPHENHYDRAMINE [Concomitant]
     Active Substance: DIPHENHYDRAMINE
     Indication: Pruritus
     Dosage: UNK, PRN
     Route: 003
     Dates: start: 20230629
  5. TYLENOL [Concomitant]
     Active Substance: ACETAMINOPHEN
     Indication: Pain
     Dosage: UNK, PRN
     Route: 048
     Dates: start: 20230511

REACTIONS (5)
  - Cervical spinal stenosis [Recovering/Resolving]
  - Concussion [Recovering/Resolving]
  - Fall [Recovering/Resolving]
  - Oropharyngeal pain [Unknown]
  - Pyrexia [Unknown]

NARRATIVE: CASE EVENT DATE: 20240101
